FAERS Safety Report 9825461 (Version 1)
Quarter: 2014Q1

REPORT INFORMATION
  Report Type: Spontaneous
  Country: US (occurrence: US)
  Receive Date: 20140117
  Receipt Date: 20140117
  Transmission Date: 20141002
  Serious: No
  Sender: FDA-Public Use
  Company Number: US-PFIZER INC-2014014482

PATIENT
  Age: 79 Year
  Sex: Male
  Weight: 81.63 kg

DRUGS (1)
  1. LYRICA [Suspect]
     Indication: DIABETIC NEUROPATHY
     Dosage: ONE 75MG CAPSULE IN THE MORNING AND 2 CAPSULES OF 75MG IN NIGHT
     Route: 048
     Dates: start: 201311, end: 201401

REACTIONS (7)
  - Hypoaesthesia [Recovered/Resolved]
  - Hypokinesia [Recovered/Resolved]
  - Swelling face [Recovered/Resolved]
  - Gingival disorder [Recovered/Resolved]
  - Activities of daily living impaired [Recovered/Resolved]
  - Weight increased [Recovered/Resolved]
  - Headache [Not Recovered/Not Resolved]
